FAERS Safety Report 18940047 (Version 2)
Quarter: 2021Q3

REPORT INFORMATION
  Report Type: Spontaneous
  Country: DE (occurrence: DE)
  Receive Date: 20210225
  Receipt Date: 20210731
  Transmission Date: 20211014
  Serious: Yes (Other)
  Sender: FDA-Public Use
  Company Number: DE-SHILPA MEDICARE LIMITED-SML-DE-2021-00203

PATIENT
  Age: 77 Year
  Sex: Female
  Weight: 77 kg

DRUGS (5)
  1. DOCETAXEL, UNKNOWN [Suspect]
     Active Substance: DOCETAXEL
     Indication: LUNG ADENOCARCINOMA
     Dosage: FORMULATION: LIQUID; TOTAL DAILY DOSE AT ONSET (DOSE, UNIT): 75MG/M2 BSA
     Dates: start: 20190704
  2. VARGATEF [Suspect]
     Active Substance: NINTEDANIB
     Route: 065
     Dates: start: 20200327
  3. VARGATEF [Suspect]
     Active Substance: NINTEDANIB
     Indication: LUNG ADENOCARCINOMA
     Route: 065
     Dates: start: 20190705, end: 20210111
  4. VARGATEF [Suspect]
     Active Substance: NINTEDANIB
     Route: 065
     Dates: start: 20200311
  5. VARGATEF [Suspect]
     Active Substance: NINTEDANIB
     Route: 065

REACTIONS (14)
  - Vomiting [Recovered/Resolved]
  - Nausea [Recovered/Resolved]
  - Nausea [Recovered/Resolved]
  - Nausea [Recovered/Resolved]
  - Nausea [Recovered/Resolved]
  - Hypertension [Recovered/Resolved]
  - Diarrhoea [Recovered/Resolved]
  - Dermatitis exfoliative generalised [Recovered/Resolved]
  - Diarrhoea [Recovered/Resolved]
  - Nausea [Recovered/Resolved]
  - Nausea [Recovered/Resolved]
  - Vomiting [Recovered/Resolved]
  - Face oedema [Recovered/Resolved]
  - Nausea [Recovered/Resolved]

NARRATIVE: CASE EVENT DATE: 20190704
